FAERS Safety Report 6286821-1 (Version None)
Quarter: 2009Q3

REPORT INFORMATION
  Report Type: 
  Country: None (occurrence: None)
  Receive Date: 20090728
  Receipt Date: 20090722
  Transmission Date: 20100115
  Serious: Yes (Other)
  Sender: FDA-Public Use
  Company Number: ZA-ABBOTT-09P-143-0587083-00

PATIENT
  Age: 8 Year

DRUGS (1)
  1. EPILIM SYRUP [Suspect]
     Indication: CONVULSION
     Route: 048

REACTIONS (4)
  - CONVULSION [None]
  - DRUG LEVEL INCREASED [None]
  - DRUG TOXICITY [None]
  - HEPATIC ENZYME INCREASED [None]
